FAERS Safety Report 5288131-8 (Version None)
Quarter: 2007Q2

REPORT INFORMATION
  Report Type: 
  Country: None (occurrence: None)
  Receive Date: 20070405
  Receipt Date: 20070322
  Transmission Date: 20071010
  Serious: Yes (Other)
  Sender: FDA-Public Use
  Company Number: PHNR2007AU00879

PATIENT
  Age: 39 Year
  Sex: Male

DRUGS (1)
  1. RITALIN [Suspect]
     Indication: NARCOLEPSY
     Dosage: 60 MG, DAILY IN DIVIDED DOSES
     Route: 048
     Dates: start: 20070301, end: 20070319

REACTIONS (7)
  - ABDOMINAL DISCOMFORT [None]
  - CHEST DISCOMFORT [None]
  - DRUG INEFFECTIVE [None]
  - HYPERHIDROSIS [None]
  - MASS [None]
  - MYALGIA [None]
  - NAUSEA [None]
